FAERS Safety Report 10087960 (Version 1)
Quarter: 2014Q2

REPORT INFORMATION
  Report Type: Spontaneous
  Country: US (occurrence: US)
  Receive Date: 20140419
  Receipt Date: 20140419
  Transmission Date: 20141212
  Serious: No
  Sender: FDA-Public Use
  Company Number: US-009507513-1404USA008936

PATIENT
  Age: 13 Year
  Sex: Male

DRUGS (2)
  1. NOXAFIL [Suspect]
     Indication: ANTIFUNGAL PROPHYLAXIS
     Dosage: 300 MG ONCE DAILY
     Route: 048
     Dates: start: 20140409, end: 20140412
  2. NOXAFIL [Suspect]
     Dosage: UNK
     Route: 048
     Dates: start: 20140405, end: 20140409

REACTIONS (1)
  - Liver function test abnormal [Not Recovered/Not Resolved]
